FAERS Safety Report 4532042-X (Version None)
Quarter: 2004Q4

REPORT INFORMATION
  Report Type: 
  Country: None (occurrence: None)
  Receive Date: 20041220
  Receipt Date: 20041209
  Transmission Date: 20050328
  Serious: Yes (Hospitalization)
  Sender: FDA-Public Use
  Company Number: KE-GLAXOSMITHKLINE-B0360516A

PATIENT
  Age: 22 Year
  Sex: Female
  Weight: 66.9 kg

DRUGS (8)
  1. COMBIVIR [Suspect]
     Indication: ANTIVIRAL PROPHYLAXIS
     Dosage: 1TAB TWICE PER DAY
     Route: 048
     Dates: start: 20040622
  2. NELFINAVIR [Suspect]
     Indication: ANTIVIRAL PROPHYLAXIS
     Dosage: 1TAB TWICE PER DAY
     Route: 048
     Dates: start: 20040622
  3. RIFAMPICIN [Concomitant]
     Indication: TUBERCULOSIS
     Dates: start: 20040702
  4. ISONIAZID [Concomitant]
     Indication: TUBERCULOSIS
     Dates: start: 20040702
  5. PYRAZINAMIDE [Concomitant]
     Indication: TUBERCULOSIS
     Dates: start: 20040702
  6. ETHAMBUTOL HYDROCHLORIDE [Concomitant]
     Indication: TUBERCULOSIS
     Dates: start: 20040702
  7. IRON SALT [Concomitant]
  8. FOLIC ACID [Concomitant]

REACTIONS (18)
  - ALANINE AMINOTRANSFERASE INCREASED [None]
  - BLOOD BILIRUBIN INCREASED [None]
  - BREATH SOUNDS DECREASED [None]
  - CARDIAC FAILURE CONGESTIVE [None]
  - COUGH [None]
  - DYSPNOEA [None]
  - FATIGUE [None]
  - HAEMOGLOBIN DECREASED [None]
  - HEPATIC CONGESTION [None]
  - HEPATIC ENZYME INCREASED [None]
  - HEPATOMEGALY [None]
  - MITOCHONDRIAL CYTOPATHY [None]
  - OEDEMA PERIPHERAL [None]
  - ORTHOPNOEA [None]
  - PALLOR [None]
  - PITTING OEDEMA [None]
  - SPLENOMEGALY [None]
  - TACHYPNOEA [None]
